FAERS Safety Report 6551847-7 (Version None)
Quarter: 2010Q1

REPORT INFORMATION
  Report Type: 
  Country: None (occurrence: None)
  Receive Date: 20100126
  Receipt Date: 20100116
  Transmission Date: 20100710
  Serious: Yes (Other)
  Sender: FDA-Public Use
  Company Number: US-PFIZER INC-2010008587

PATIENT
  Sex: Male
  Weight: 141.52 kg

DRUGS (2)
  1. LIPITOR [Suspect]
     Route: 048
     Dates: start: 20100116
  2. HEROIN [Suspect]

REACTIONS (5)
  - HAIR GROWTH ABNORMAL [None]
  - INCORRECT DOSE ADMINISTERED [None]
  - MELANOCYTIC NAEVUS [None]
  - PENIS DISORDER [None]
  - UNEVALUABLE EVENT [None]
